FAERS Safety Report 10877579 (Version 1)
Quarter: 2015Q1

REPORT INFORMATION
  Report Type: Spontaneous
  Country: CA (occurrence: CA)
  Receive Date: 20150302
  Receipt Date: 20150302
  Transmission Date: 20150721
  Serious: Yes (Hospitalization, Other)
  Sender: FDA-Public Use
  Company Number: CA-SHIRE-CA201501482

PATIENT
  Age: 16 Year
  Sex: Male
  Weight: 45 kg

DRUGS (5)
  1. INTUNIV [Suspect]
     Active Substance: GUANFACINE HYDROCHLORIDE
     Indication: ATTENTION DEFICIT/HYPERACTIVITY DISORDER
     Dosage: 1 MG, 1X/DAY:QD
     Route: 048
  2. FLUOXETINE [Concomitant]
     Active Substance: FLUOXETINE\FLUOXETINE HYDROCHLORIDE
     Indication: PRODUCT USED FOR UNKNOWN INDICATION
     Dosage: UNK, UNKNOWN
     Route: 065
  3. ATIVAN [Suspect]
     Active Substance: LORAZEPAM
     Dosage: 1.5 MG, 2X/DAY:BID
     Route: 048
  4. ATIVAN [Suspect]
     Active Substance: LORAZEPAM
     Indication: AGITATION
     Dosage: 0.5 MG, 2X/DAY:BID
     Route: 048
  5. ATIVAN [Suspect]
     Active Substance: LORAZEPAM
     Indication: AGGRESSION
     Dosage: 1 MG, 2X/DAY:BID
     Route: 048

REACTIONS (3)
  - Agitation [Recovered/Resolved]
  - Aggression [Recovered/Resolved]
  - Product use issue [Recovered/Resolved]
